FAERS Safety Report 6077410-2 (Version None)
Quarter: 2009Q1

REPORT INFORMATION
  Report Type: 
  Country: None (occurrence: None)
  Receive Date: 20090213
  Receipt Date: 20090206
  Transmission Date: 20090719
  Serious: Yes (Other)
  Sender: FDA-Public Use
  Company Number: US-JNJFOC-20090202481

PATIENT
  Age: 21 Year
  Sex: Female
  Weight: 58.97 kg

DRUGS (2)
  1. TYLENOL (CAPLET) [Suspect]
  2. TYLENOL (CAPLET) [Suspect]
     Indication: DRUG USE FOR UNKNOWN INDICATION
     Dosage: 5200-6500 MG

REACTIONS (3)
  - HYPOAESTHESIA [None]
  - INTENTIONAL OVERDOSE [None]
  - INTENTIONAL SELF-INJURY [None]
